FAERS Safety Report 18282859 (Version 1)
Quarter: 2020Q3

REPORT INFORMATION
  Report Type: Spontaneous
  Country: US (occurrence: US)
  Receive Date: 20200918
  Receipt Date: 20200918
  Transmission Date: 20201103
  Serious: Yes (Hospitalization, Other)
  Sender: FDA-Public Use
  Company Number: US-ACS-001780

PATIENT
  Sex: Female
  Weight: 58.5 kg

DRUGS (22)
  1. ENOXAPARIN [Concomitant]
     Active Substance: ENOXAPARIN
     Indication: VENOUS THROMBOSIS
     Dosage: UNTIL INR 2?3
     Route: 058
     Dates: start: 20200303
  2. CRANBERRY FRUIT EXTRACT [Concomitant]
     Indication: NUTRITIONAL SUPPLEMENTATION
     Route: 048
  3. LEVOTHYROXINE. [Concomitant]
     Active Substance: LEVOTHYROXINE
     Indication: HYPOTHYROIDISM
     Dosage: MONDAY THROUGH FRIDAY ONLY
     Route: 048
  4. WARFARIN [Concomitant]
     Active Substance: WARFARIN
     Indication: THROMBOSIS PROPHYLAXIS
     Dosage: THEN 7.5 MG ALL OTHER DAYS
     Route: 048
  5. MELOXICAM. [Concomitant]
     Active Substance: MELOXICAM
     Indication: PROCEDURAL PAIN
     Route: 048
     Dates: start: 20200303, end: 20200603
  6. DOCUSATE SODIUM. [Concomitant]
     Active Substance: DOCUSATE SODIUM
     Indication: CONSTIPATION
     Route: 048
  7. METHANAMINE HIPPURATE [Concomitant]
     Indication: URINARY TRACT DISORDER PROPHYLAXIS
     Route: 048
  8. OXYCODONE [Concomitant]
     Active Substance: OXYCODONE
     Indication: PROCEDURAL PAIN
     Dosage: 1?2 X 3 DAILY
     Route: 048
     Dates: start: 20200303, end: 20200310
  9. CARBOXYMETHYLCELLULOSE 0.5 % OPTHALMIC SOLUTION [Concomitant]
     Indication: DRY EYE
     Dosage: 1 DROP DAILY ON EACH EYE AS NEEDED
     Route: 047
  10. OXYGEN. [Concomitant]
     Active Substance: OXYGEN
     Indication: SLEEP APNOEA SYNDROME
     Dosage: 1 L/MIN; NIGHTLY AT BEDTIME
     Route: 045
  11. D?MANNOSE [Concomitant]
     Indication: URINARY TRACT DISORDER PROPHYLAXIS
     Dosage: 3 CAPSULE DAILY
     Route: 048
  12. DILTIAZEM. [Concomitant]
     Active Substance: DILTIAZEM
     Indication: ARRHYTHMIA SUPRAVENTRICULAR
     Route: 048
  13. LACTOBACILLUS ACIDOPHILUS [Concomitant]
     Active Substance: LACTOBACILLUS ACIDOPHILUS
     Indication: NUTRITIONAL SUPPLEMENTATION
     Dosage: 1 TWICE DAILY
     Route: 048
  14. CETIRIZINE [Concomitant]
     Active Substance: CETIRIZINE HYDROCHLORIDE
     Indication: HYPERSENSITIVITY
     Dosage: PRIOR TO ALLERGY SHOTS
     Route: 048
  15. ERTAPENEM. [Suspect]
     Active Substance: ERTAPENEM SODIUM
     Indication: CELLULITIS
     Route: 042
     Dates: start: 20200313, end: 20200319
  16. ACETAMINOPHEN. [Concomitant]
     Active Substance: ACETAMINOPHEN
     Indication: PROCEDURAL PAIN
     Route: 048
     Dates: start: 20200303, end: 20200308
  17. ASCORBIC ACID. [Concomitant]
     Active Substance: ASCORBIC ACID
     Indication: VITAMIN SUPPLEMENTATION
     Route: 048
  18. AUTOLOGOUS SERUM 50 % EYE DROPS [Concomitant]
     Indication: DRY EYE
     Dosage: 1 DROP X 2 DAILY ON EACH EYE
     Route: 047
     Dates: start: 20200303, end: 20200602
  19. GABAPENTIN. [Concomitant]
     Active Substance: GABAPENTIN
     Indication: NEUROPATHY PERIPHERAL
     Dosage: 1?2 NIGHTLY
     Route: 048
  20. BRIMONIDINE 0.2% OPHTHALMIC SOLUTION [Concomitant]
     Indication: OPEN ANGLE GLAUCOMA
     Dosage: 1 DROP X 2 DAILY ON EACH EYE
     Route: 047
     Dates: start: 20200303, end: 20200602
  21. ESTRADIOL 0.01% VAGINAL CREAM [Concomitant]
     Indication: ATROPHIC VULVOVAGINITIS
     Route: 067
  22. FLECAINIDE [Concomitant]
     Active Substance: FLECAINIDE
     Indication: ATRIAL FIBRILLATION
     Route: 048

REACTIONS (1)
  - Diarrhoea [Recovered/Resolved]

NARRATIVE: CASE EVENT DATE: 20200316
